FAERS Safety Report 17340199 (Version 1)
Quarter: 2020Q1

REPORT INFORMATION
  Report Type: Spontaneous
  Country: US (occurrence: US)
  Receive Date: 20200129
  Receipt Date: 20200129
  Transmission Date: 20200409
  Serious: No
  Sender: FDA-Public Use
  Company Number: US-ALLERGAN-1923741US

PATIENT
  Sex: Female

DRUGS (5)
  1. UNSPECIFIED MEDICINE FOR BIRTH CONTROL [Concomitant]
     Indication: CONTRACEPTION
     Dosage: UNK, UNKNOWN
     Route: 065
  2. BOTOX COSMETIC [Suspect]
     Active Substance: ONABOTULINUMTOXINA
     Indication: SKIN WRINKLING
     Dosage: UNK, SINGLE
     Dates: start: 20190415, end: 20190415
  3. JUVEDERM [Concomitant]
     Active Substance: HYALURONIC ACID
     Indication: SKIN WRINKLING
     Dosage: UNK, SINGLE
     Route: 065
     Dates: start: 20190415, end: 20190415
  4. LEXAPRO [Concomitant]
     Active Substance: ESCITALOPRAM OXALATE
     Indication: PRODUCT USED FOR UNKNOWN INDICATION
     Dosage: UNK, UNKNOWN
     Route: 065
  5. BOTOX COSMETIC [Suspect]
     Active Substance: ONABOTULINUMTOXINA
     Indication: SKIN WRINKLING
     Dosage: UNK, SINGLE
     Dates: start: 20190415, end: 20190415

REACTIONS (2)
  - Urticaria [Recovered/Resolved]
  - Injection site nodule [Recovered/Resolved]

NARRATIVE: CASE EVENT DATE: 20190528
